FAERS Safety Report 9313650 (Version 2)
Quarter: 2013Q4

REPORT INFORMATION
  Report Type: Report from Study
  Country: FR (occurrence: FR)
  Receive Date: 20130529
  Receipt Date: 20131017
  Transmission Date: 20140711
  Serious: Yes (Hospitalization)
  Sender: FDA-Public Use
  Company Number: FR-BRISTOL-MYERS SQUIBB COMPANY-18915058

PATIENT
  Age: 72 Year
  Sex: Male
  Weight: 77 kg

DRUGS (14)
  1. PACLITAXEL [Suspect]
     Indication: HER-2 POSITIVE BREAST CANCER
     Dosage: LAST DOSE:25APR13, INTERRUPTED ON 02MAY13 IS 159 MG.DURATION :86DAYS
     Route: 042
     Dates: start: 20130130, end: 20130502
  2. PERTUZUMAB [Suspect]
     Indication: HER-2 POSITIVE BREAST CANCER
     Dosage: LOADING DOSE840MG/KG;MAINTENANCE AND LAST DOSE ON 25APR13 IS 420 MG.?29JAN13-?19FEB13-ONG
     Route: 042
     Dates: start: 20130129
  3. TRASTUZUMAB [Suspect]
     Indication: HER-2 POSITIVE BREAST CANCER
     Dosage: LOADING DOSE8MG/KG?MAINTENANCE DOSE+LAST DOSE ON 25APR13 IS 462MG.19FEB13-ONG
     Route: 042
     Dates: start: 20130129
  4. PRADAXA [Concomitant]
     Indication: ARRHYTHMIA
     Dosage: ONGOING
     Dates: start: 20130111
  5. COAPROVEL [Concomitant]
     Dosage: TABS
     Dates: start: 20130111, end: 20130507
  6. CARDENALIN [Concomitant]
     Indication: ARRHYTHMIA
     Dates: start: 20130111, end: 20130428
  7. CARDENSIEL [Concomitant]
  8. SODIUM BICARBONATE [Concomitant]
     Dosage: MOUTHWASH
     Route: 048
     Dates: start: 20130418, end: 20130510
  9. DEXAMETHASONE [Concomitant]
     Dosage: 20MG,30JAN13-30JAN13,06FEB13-25APR13
     Dates: start: 20130130
  10. RANITIDINE [Concomitant]
     Dates: start: 20130130, end: 20130425
  11. ZOPHREN [Concomitant]
     Indication: PROPHYLAXIS OF NAUSEA AND VOMITING
     Dates: start: 20130130, end: 20130425
  12. XYZALL [Concomitant]
     Dates: start: 20130206, end: 20130425
  13. SMECTA [Concomitant]
     Dosage: 07FEB13-18FEB13,03MAY13-17MAY13,1DF: 3-4PACKETS
     Dates: start: 20130207
  14. XATRAL [Concomitant]
     Indication: BENIGN PROSTATIC HYPERPLASIA
     Dates: start: 20130401

REACTIONS (12)
  - General physical health deterioration [Recovered/Resolved with Sequelae]
  - Diarrhoea [Unknown]
  - Hypokalaemia [Unknown]
  - Rectal haemorrhage [Unknown]
  - Anaemia [Unknown]
  - Sepsis [Unknown]
  - Renal failure [Unknown]
  - Hyperglycaemia [Unknown]
  - Oral fungal infection [Unknown]
  - Genital infection fungal [Unknown]
  - Prostate infection [Unknown]
  - Urinary tract infection [Unknown]
